FAERS Safety Report 4707947-7 (Version None)
Quarter: 2005Q3

REPORT INFORMATION
  Report Type: 
  Country: None (occurrence: None)
  Receive Date: 20050705
  Receipt Date: 20050705
  Transmission Date: 20060218
  Serious: Yes (Other)
  Sender: FDA-Public Use
  Company Number: None

PATIENT
  Sex: Male
  Weight: 68.0396 kg

DRUGS (2)
  1. FENTANYL PATCH   100 MCG/HR    MYLAN LABS [Suspect]
     Indication: LIMB INJURY
     Dosage: 100MCG PATCH   EVERY 3 DAYS   TRANSDERMA
     Route: 062
     Dates: start: 20050621, end: 20050703
  2. FENTANYL PATCH   100 MCG/HR    MYLAN LABS [Suspect]
     Indication: PROCEDURAL PAIN
     Dosage: 100MCG PATCH   EVERY 3 DAYS   TRANSDERMA
     Route: 062
     Dates: start: 20050621, end: 20050703

REACTIONS (2)
  - DRUG EFFECT DECREASED [None]
  - PHARMACEUTICAL PRODUCT COMPLAINT [None]
